FAERS Safety Report 6331788-0 (Version None)
Quarter: 2009Q3

REPORT INFORMATION
  Report Type: 
  Country: None (occurrence: None)
  Receive Date: 20090826
  Receipt Date: 20090812
  Transmission Date: 20100115
  Serious: Yes (Other)
  Sender: FDA-Public Use
  Company Number: 8050134

PATIENT
  Age: 81 Year
  Sex: Male
  Weight: 70 kg

DRUGS (2)
  1. KEPPRA [Suspect]
     Indication: CONVULSION
     Dates: start: 20060101
  2. VIMPAT [Suspect]
     Indication: CONVULSION
     Dosage: 50 MG 1/D
     Dates: start: 20090518

REACTIONS (2)
  - DYSPNOEA [None]
  - SUFFOCATION FEELING [None]
